FAERS Safety Report 5805883-6 (Version None)
Quarter: 2008Q3

REPORT INFORMATION
  Report Type: 
  Country: None (occurrence: None)
  Receive Date: 20080710
  Receipt Date: 20080625
  Transmission Date: 20090109
  Serious: Yes (Hospitalization)
  Sender: FDA-Public Use
  Company Number: JP-ROCHE-573933

PATIENT
  Sex: Male

DRUGS (26)
  1. VALGANCICLOVIR HCL [Suspect]
     Indication: CYTOMEGALOVIRUS CHORIORETINITIS
     Route: 048
     Dates: start: 20060304, end: 20060425
  2. VALGANCICLOVIR HCL [Suspect]
     Route: 048
     Dates: start: 20060426, end: 20070322
  3. VALGANCICLOVIR HCL [Suspect]
     Route: 048
     Dates: start: 20070509, end: 20071030
  4. VALGANCICLOVIR HCL [Suspect]
     Route: 048
     Dates: start: 20080122, end: 20080220
  5. NORVIR [Suspect]
     Indication: HIV INFECTION
     Dosage: DRUG: NORVIR_SOFT
     Route: 048
     Dates: start: 20060324, end: 20060414
  6. NORVIR [Suspect]
     Route: 048
     Dates: start: 20080126
  7. REYATAZ [Suspect]
     Indication: HIV INFECTION
     Route: 048
     Dates: start: 20060324, end: 20060414
  8. KALETRA [Suspect]
     Indication: HIV INFECTION
     Route: 048
     Dates: start: 20061110, end: 20071101
  9. LEXIVA [Concomitant]
     Route: 048
     Dates: start: 20060526, end: 20061109
  10. TRUVADA [Concomitant]
     Dosage: DRUG REPORTED AS EMTRICITABINE TENOFOVIR DISOPROXIL FUMARATE
     Route: 048
     Dates: start: 20060324, end: 20070414
  11. TRUVADA [Concomitant]
     Route: 048
     Dates: start: 20060526
  12. BAKTAR [Concomitant]
     Route: 048
     Dates: start: 20060224, end: 20060306
  13. BAKTAR [Concomitant]
     Route: 048
     Dates: start: 20060307, end: 20060316
  14. BAKTAR [Concomitant]
     Route: 048
     Dates: start: 20060317
  15. ZITHROMAX [Concomitant]
     Route: 048
     Dates: start: 20060215
  16. GERANIUM EXTRACT [Concomitant]
     Dosage: DRUG REPORTED AS BERBERINE CHLORIDE GERANIUM HERB EXTRACT (O)
  17. LOPERAMIDE HYDROCHLORIDE [Concomitant]
  18. HANGE-SHASHIN-TO [Concomitant]
  19. GANCICLOVIR [Concomitant]
     Dosage: FORM: INFUSION
     Route: 041
     Dates: start: 20060215, end: 20060303
  20. GANCICLOVIR [Concomitant]
     Route: 041
     Dates: start: 20070424, end: 20070508
  21. STOCRIN [Concomitant]
     Route: 048
     Dates: start: 20071102, end: 20080125
  22. INVIRASE [Concomitant]
     Route: 048
     Dates: start: 20080126
  23. FOSCAVIR [Concomitant]
     Dosage: FORM: INFUSION
     Route: 041
     Dates: start: 20071129, end: 20071219
  24. FOSCAVIR [Concomitant]
     Route: 041
     Dates: start: 20071220, end: 20080121
  25. FOSCAVIR [Concomitant]
     Route: 041
     Dates: start: 20080221, end: 20080325
  26. FOSCAVIR [Concomitant]
     Route: 041
     Dates: start: 20080326

REACTIONS (7)
  - AIDS ENCEPHALOPATHY [None]
  - ANAEMIA [None]
  - DIARRHOEA [None]
  - LYMPHOMA [None]
  - PNEUMONIA FUNGAL [None]
  - PYREXIA [None]
  - RASH GENERALISED [None]
